FAERS Safety Report 4367740-4 (Version None)
Quarter: 2004Q2

REPORT INFORMATION
  Report Type: 
  Country: None (occurrence: None)
  Receive Date: 20040527
  Receipt Date: 20030718
  Transmission Date: 20050107
  Serious: Yes (Disabling)
  Sender: FDA-Public Use
  Company Number: 342838

PATIENT
  Age: 48 Year
  Sex: Female

DRUGS (1)
  1. LARIAM [Suspect]
     Indication: MALARIA PROPHYLAXIS
     Dosage: 1 DOSE FORM 1 PER WEEK ORAL
     Route: 048
     Dates: start: 19991220, end: 20000207

REACTIONS (1)
  - TINNITUS [None]
